FAERS Safety Report 6103150-7 (Version None)
Quarter: 2009Q1

REPORT INFORMATION
  Report Type: 
  Country: None (occurrence: None)
  Receive Date: 20090305
  Receipt Date: 20090224
  Transmission Date: 20090719
  Serious: Yes (Other)
  Sender: FDA-Public Use
  Company Number: US-PFIZER INC-2008101411

PATIENT
  Sex: Male
  Weight: 63.492 kg

DRUGS (3)
  1. NICOTROL [Suspect]
     Dosage: UNK
     Dates: start: 20080801
  2. DIPHENOXYLATE [Concomitant]
  3. LOPERAMIDE HCL [Concomitant]

REACTIONS (4)
  - ANKLE FRACTURE [None]
  - DRUG INEFFECTIVE [None]
  - ENDODONTIC PROCEDURE [None]
  - IRRITABLE BOWEL SYNDROME [None]
